FAERS Safety Report 7726167-5 (Version None)
Quarter: 2011Q3

REPORT INFORMATION
  Report Type: 
  Country: None (occurrence: None)
  Receive Date: 20110831
  Receipt Date: 20101129
  Transmission Date: 20111222
  Serious: Yes (Other)
  Sender: FDA-Public Use
  Company Number: SIM_00106_2011

PATIENT
  Age: 9 Year
  Sex: Male
  Weight: 23.587 kg

DRUGS (5)
  1. KIDS COLD + MUCUS RELIEF (HOMEOPATHIC) [Suspect]
     Indication: PYREXIA
     Dosage: (1 DF ORAL)
     Route: 048
     Dates: start: 20101128
  2. KIDS COLD + MUCUS RELIEF (HOMEOPATHIC) [Suspect]
     Indication: RHINORRHOEA
     Dosage: (1 DF ORAL)
     Route: 048
     Dates: start: 20101128
  3. KIDS COLD + MUCUS RELIEF (HOMEOPATHIC) [Suspect]
     Indication: PRODUCTIVE COUGH
     Dosage: (1 DF ORAL)
     Route: 048
     Dates: start: 20101128
  4. KIDS COLD + MUCUS RELIEF (HOMEOPATHIC) [Suspect]
     Indication: MALAISE
     Dosage: (1 DF ORAL)
     Route: 048
     Dates: start: 20101128
  5. KIDS COLD + MUCUS RELIEF (HOMEOPATHIC) [Suspect]
     Indication: HYPERHIDROSIS
     Dosage: (1 DF ORAL)
     Route: 048
     Dates: start: 20101128

REACTIONS (9)
  - EYES SUNKEN [None]
  - ABNORMAL BEHAVIOUR [None]
  - DELUSION [None]
  - PYREXIA [None]
  - HYPERHIDROSIS [None]
  - SOMNOLENCE [None]
  - HALLUCINATION [None]
  - PALLOR [None]
  - TENSION [None]
